FAERS Safety Report 5032947-X (Version None)
Quarter: 2006Q2

REPORT INFORMATION
  Report Type: 
  Country: None (occurrence: None)
  Receive Date: 20060622
  Receipt Date: 20060328
  Transmission Date: 20061013
  Serious: Yes (Hospitalization, Other)
  Sender: FDA-Public Use
  Company Number: JP-BRISTOL-MYERS SQUIBB COMPANY-13336961

PATIENT
  Age: 77 Year
  Sex: Male

DRUGS (7)
  1. GATIFLOXACIN [Suspect]
     Indication: BRONCHITIS
     Route: 048
     Dates: start: 20060301, end: 20060302
  2. BASEN [Suspect]
     Route: 048
     Dates: start: 20060116
  3. GLUFAST [Suspect]
     Route: 048
     Dates: start: 20060116, end: 20060401
  4. LIVACT [Concomitant]
     Route: 048
  5. CELTECT [Concomitant]
     Route: 048
  6. PENTOXYVERINE [Concomitant]
     Route: 048
  7. GASLON N [Concomitant]

REACTIONS (2)
  - DRUG INEFFECTIVE [None]
  - HYPOGLYCAEMIA [None]
